FAERS Safety Report 8610762-5 (Version None)
Quarter: 2012Q3

REPORT INFORMATION
  Report Type: 
  Country: None (occurrence: None)
  Receive Date: 20120822
  Receipt Date: 20120821
  Transmission Date: 20120928
  Serious: Yes (Other)
  Sender: FDA-Public Use
  Company Number: CA-BAYER-2012-085993

PATIENT
  Age: 53 Year
  Sex: Female
  Weight: 77 kg

DRUGS (4)
  1. SYNTHROID [Concomitant]
  2. WELLBUTRIN [Concomitant]
  3. EFFEXOR XR [Concomitant]
  4. GADAVIST [Suspect]
     Dosage: 8 ML, UNK
     Route: 042

REACTIONS (2)
  - ANXIETY [None]
  - URTICARIA [None]
